FAERS Safety Report 16425428 (Version 1)
Quarter: 2019Q2

REPORT INFORMATION
  Report Type: Spontaneous
  Country: US (occurrence: US)
  Receive Date: 20190613
  Receipt Date: 20190613
  Transmission Date: 20190711
  Serious: Yes (Hospitalization)
  Sender: FDA-Public Use
  Company Number: US-TEVA-2019-US-1061409

PATIENT
  Age: 1 Hour
  Sex: Female
  Weight: 2.81 kg

DRUGS (1)
  1. PROMETHAZINE [Suspect]
     Active Substance: PROMETHAZINE\PROMETHAZINE HYDROCHLORIDE
     Indication: ACCIDENTAL OVERDOSE
     Dosage: 8.9 MG/KG DOSE
     Route: 030

REACTIONS (6)
  - Hypopnoea [Recovered/Resolved]
  - Extrasystoles [Recovered/Resolved]
  - Somnolence neonatal [Recovered/Resolved]
  - Accidental overdose [Unknown]
  - Poor feeding infant [Recovered/Resolved]
  - Wrong product administered [Unknown]
